FAERS Safety Report 10930542 (Version 1)
Quarter: 2015Q1

REPORT INFORMATION
  Report Type: Spontaneous
  Country: US (occurrence: None)
  Receive Date: 20150211
  Receipt Date: 20150211
  Transmission Date: 20150721
  Serious: Yes (Other)
  Sender: FDA-Public Use
  Company Number: 2201746

PATIENT
  Age: 77 Year
  Sex: Male
  Weight: 81.81 kg

DRUGS (2)
  1. BUPIVACAINE HCL 0.75% IN DEX 8.25% INJ, USP   (BUPIV. SPINAL) (BUPIVACAINE HYDROCHLORIDE) [Suspect]
     Active Substance: BUPIVACAINE HYDROCHLORIDE\DEXTROSE
     Indication: SPINAL ANAESTHESIA
     Route: 024
     Dates: start: 20140205
  2. BUPIVACAINE HCL 0.75% IN DEX 8.25% INJ, USP   (BUPIV. SPINAL) (BUPIVACAINE HYDROCHLORIDE) [Suspect]
     Active Substance: BUPIVACAINE HYDROCHLORIDE\DEXTROSE
     Indication: NERVE BLOCK
     Route: 024
     Dates: start: 20140205

REACTIONS (1)
  - Drug ineffective [None]

NARRATIVE: CASE EVENT DATE: 20140205
